FAERS Safety Report 19037818 (Version 2)
Quarter: 2021Q2

REPORT INFORMATION
  Report Type: Spontaneous
  Country: JP (occurrence: JP)
  Receive Date: 20210322
  Receipt Date: 20210406
  Transmission Date: 20210717
  Serious: Yes (Hospitalization)
  Sender: FDA-Public Use
  Company Number: JP-AMGEN-JPNSP2021042574

PATIENT
  Age: 79 Year
  Sex: Female
  Weight: 41 kg

DRUGS (13)
  1. ORKEDIA [Concomitant]
     Active Substance: EVOCALCET
     Dosage: 2 MILLIGRAM, QD
     Route: 048
     Dates: start: 20191108, end: 20200206
  2. ORKEDIA [Concomitant]
     Active Substance: EVOCALCET
     Dosage: 1 MILLIGRAM, QD
     Route: 048
     Dates: start: 20190913, end: 20191107
  3. HORNEL [Concomitant]
     Dosage: 0.15 UG, EVERYDAY
     Route: 065
     Dates: start: 20201002
  4. PARSABIV [Suspect]
     Active Substance: ETELCALCETIDE HYDROCHLORIDE
     Indication: HYPERPARATHYROIDISM SECONDARY
     Dosage: UNK
     Route: 010
  5. ALFAROL [Concomitant]
     Active Substance: ALFACALCIDOL
     Dosage: 0.5 MICROGRAM, QD
     Route: 065
     Dates: end: 20201002
  6. ORKEDIA [Concomitant]
     Active Substance: EVOCALCET
     Dosage: 1 MILLIGRAM, QD
     Route: 048
     Dates: start: 20200207
  7. PHOSBLOCK [Concomitant]
     Active Substance: FERRIC HYDROXIDE
     Dosage: 1500 MILLIGRAM, QD
     Route: 065
  8. NESP [Concomitant]
     Active Substance: DARBEPOETIN ALFA
     Dosage: 40 MICROGRAM, QWK
     Route: 065
  9. RIONA [Concomitant]
     Active Substance: FERRIC CITRATE ANHYDROUS
     Dosage: 2250 MILLIGRAM, QD
     Route: 065
     Dates: end: 20201113
  10. RIONA [Concomitant]
     Active Substance: FERRIC CITRATE ANHYDROUS
     Dosage: 1500 MILLIGRAM, QD
     Route: 065
     Dates: start: 20201113
  11. HORNEL [Concomitant]
     Dosage: 0.15 MICROGRAM, QD
     Route: 065
     Dates: start: 20201002
  12. CALTAN [Concomitant]
     Active Substance: CALCIUM CARBONATE
     Dosage: 1500 MILLIGRAM, QD
     Route: 065
     Dates: end: 20201030
  13. FESIN [SACCHARATED IRON OXIDE] [Concomitant]
     Active Substance: IRON SUCROSE
     Dosage: 40 MILLIGRAM, QWK
     Route: 065
     Dates: end: 20200622

REACTIONS (1)
  - Urinary tract infection [Recovered/Resolved]

NARRATIVE: CASE EVENT DATE: 20210112
